FAERS Safety Report 22191558 (Version 1)
Quarter: 2023Q2

REPORT INFORMATION
  Report Type: Spontaneous
  Country: US (occurrence: None)
  Receive Date: 20230407
  Receipt Date: 20230407
  Transmission Date: 20230721
  Serious: No
  Sender: FDA-Public Use
  Company Number: None

PATIENT
  Age: 48 Year
  Sex: Female
  Weight: 53.07 kg

DRUGS (20)
  1. WELIREG [Suspect]
     Active Substance: BELZUTIFAN
     Indication: Product used for unknown indication
     Dosage: FREQUENCY : DAILY;?
     Route: 048
     Dates: start: 202201
  2. ALEVE [Concomitant]
     Active Substance: NAPROXEN SODIUM
  3. AMINO ACIDS, SOURCE UNSPECIFIED [Concomitant]
     Active Substance: AMINO ACIDS, SOURCE UNSPECIFIED
  4. AZO BORIC ACID [Concomitant]
  5. BETHANECHOL [Concomitant]
     Active Substance: BETHANECHOL
  6. CLONAZEPAM [Concomitant]
     Active Substance: CLONAZEPAM
  7. CLONIDINE [Concomitant]
     Active Substance: CLONIDINE
  8. CORTISONE [Concomitant]
     Active Substance: CORTISONE
  9. GABAPENTIN [Concomitant]
     Active Substance: GABAPENTIN
  10. LEVOFLOXACIN [Concomitant]
     Active Substance: LEVOFLOXACIN
  11. MEDROL [Concomitant]
     Active Substance: METHYLPREDNISOLONE
  12. MELOXICAM [Concomitant]
     Active Substance: MELOXICAM
  13. HERBALS\TURMERIC [Concomitant]
     Active Substance: HERBALS\TURMERIC
  14. TYLENOL [Concomitant]
     Active Substance: ACETAMINOPHEN
  15. VITAMIN B COMPLEX [Concomitant]
     Active Substance: CYANOCOBALAMIN\DEXPANTHENOL\NIACINAMIDE\PYRIDOXINE HYDROCHLORIDE\RIBOFLAVIN 5^-PHOSPHATE SODIUM\THIA
  16. VITAMIN C [Concomitant]
     Active Substance: ASCORBIC ACID
  17. VITAMIN D3 [Concomitant]
     Active Substance: CHOLECALCIFEROL
  18. MUCIL PLUS CALCIUM [Concomitant]
  19. VITAMINS [Concomitant]
     Active Substance: VITAMINS
  20. ZOFRAN [Concomitant]
     Active Substance: ONDANSETRON HYDROCHLORIDE

REACTIONS (4)
  - Haemoglobin decreased [None]
  - Haematocrit decreased [None]
  - Red blood cell count decreased [None]
  - Hypopnoea [None]
